FAERS Safety Report 24850484 (Version 2)
Quarter: 2025Q1

REPORT INFORMATION
  Report Type: Spontaneous
  Country: ES (occurrence: ES)
  Receive Date: 20250116
  Receipt Date: 20250218
  Transmission Date: 20250409
  Serious: Yes (Other)
  Sender: HIKMA
  Company Number: ES-HIKMA PHARMACEUTICALS-ES-H14001-25-00418

PATIENT
  Age: 62 Year
  Sex: Female
  Weight: 48.5 kg

DRUGS (32)
  1. CARBOPLATIN [Suspect]
     Active Substance: CARBOPLATIN
     Dosage: 405 MILLIGRAM, 3W
     Route: 042
     Dates: start: 20241115, end: 20241115
  2. CARBOPLATIN [Suspect]
     Active Substance: CARBOPLATIN
     Dosage: 405 MILLIGRAM, 3W
     Route: 042
     Dates: start: 20241205, end: 20241205
  3. CARBOPLATIN [Suspect]
     Active Substance: CARBOPLATIN
     Route: 042
     Dates: start: 20241231, end: 20241231
  4. CARBOPLATIN [Suspect]
     Active Substance: CARBOPLATIN
     Indication: Non-small cell lung cancer
     Dosage: 450 MILLIGRAM, 3W
     Route: 042
     Dates: start: 20241024, end: 20241024
  5. PEMETREXED [Suspect]
     Active Substance: PEMETREXED
     Indication: Non-small cell lung cancer
     Dosage: 500 MILLIGRAM, 3W
     Route: 042
     Dates: start: 20241024, end: 20241024
  6. PEMETREXED [Suspect]
     Active Substance: PEMETREXED
     Dosage: 500 MILLIGRAM, 3W
     Route: 042
     Dates: start: 20241115, end: 20241115
  7. PEMETREXED [Suspect]
     Active Substance: PEMETREXED
     Dosage: 500 MILLIGRAM/KILOGRAM, 3W
     Route: 042
     Dates: start: 20241205, end: 20241205
  8. PEMETREXED [Suspect]
     Active Substance: PEMETREXED
     Dosage: 500 MILLIGRAM/KILOGRAM, 3W
     Route: 042
     Dates: start: 20241231, end: 20241231
  9. PEMETREXED [Suspect]
     Active Substance: PEMETREXED
     Route: 042
     Dates: start: 20250121, end: 20250121
  10. VUDALIMAB [Suspect]
     Active Substance: VUDALIMAB
     Indication: Non-small cell lung cancer
     Dosage: 500 MILLIGRAM, 3W
     Route: 042
     Dates: start: 20241024, end: 20241024
  11. VUDALIMAB [Suspect]
     Active Substance: VUDALIMAB
     Dosage: 500 MILLIGRAM, 3W
     Route: 042
     Dates: start: 20241115, end: 20241115
  12. VUDALIMAB [Suspect]
     Active Substance: VUDALIMAB
     Dosage: 500 MILLIGRAM, 3W
     Route: 042
     Dates: start: 20241205, end: 20241205
  13. VUDALIMAB [Suspect]
     Active Substance: VUDALIMAB
     Dosage: 500 MILLIGRAM, 3W
     Route: 042
     Dates: start: 20250121, end: 20250121
  14. ABSTRAL [Concomitant]
     Active Substance: FENTANYL CITRATE
     Indication: Product used for unknown indication
     Route: 065
     Dates: start: 20241022
  15. BACTROBAN [Concomitant]
     Active Substance: MUPIROCIN CALCIUM
     Indication: Product used for unknown indication
     Route: 065
     Dates: start: 20241114
  16. CYTISINICLINE [Concomitant]
     Active Substance: CYTISINICLINE
     Indication: Product used for unknown indication
     Route: 065
     Dates: start: 2024, end: 20241204
  17. DEXAMETHASONE [Concomitant]
     Active Substance: DEXAMETHASONE
     Indication: Product used for unknown indication
     Route: 065
     Dates: start: 20241115, end: 20241205
  18. FENTANYL [Concomitant]
     Active Substance: FENTANYL
     Indication: Product used for unknown indication
     Route: 065
     Dates: start: 20241022
  19. CYANOCOBALAMIN\FOLIC ACID [Concomitant]
     Active Substance: CYANOCOBALAMIN\FOLIC ACID
     Indication: Product used for unknown indication
     Route: 065
     Dates: start: 20241001
  20. DEXAMETHASONE [Concomitant]
     Active Substance: DEXAMETHASONE
     Indication: Product used for unknown indication
     Route: 065
     Dates: start: 20241115, end: 20241208
  21. FOSAPREPITANT [Concomitant]
     Active Substance: FOSAPREPITANT
     Indication: Product used for unknown indication
     Route: 065
     Dates: start: 20241115, end: 20241205
  22. IBUPROFEN [Concomitant]
     Active Substance: IBUPROFEN
     Indication: Product used for unknown indication
     Route: 065
     Dates: start: 202406
  23. LORAZEPAM [Concomitant]
     Active Substance: LORAZEPAM
     Indication: Product used for unknown indication
     Route: 065
     Dates: start: 20241022
  24. LOSARTAN AND HYDROCHLOROTHIAZIDE [Concomitant]
     Active Substance: HYDROCHLOROTHIAZIDE\LOSARTAN POTASSIUM
     Indication: Product used for unknown indication
     Route: 065
     Dates: start: 201305
  25. LYRICA [Concomitant]
     Active Substance: PREGABALIN
     Indication: Product used for unknown indication
     Route: 065
     Dates: start: 20241022, end: 20241121
  26. MOVICOL [Concomitant]
     Active Substance: POLYETHYLENE GLYCOL 3350\POTASSIUM CHLORIDE\SODIUM BICARBONATE\SODIUM CHLORIDE
     Indication: Product used for unknown indication
     Route: 065
     Dates: start: 202412
  27. OLANZAPINE [Concomitant]
     Active Substance: OLANZAPINE
     Indication: Product used for unknown indication
     Route: 065
     Dates: start: 20241115, end: 20241208
  28. OMEPRAZOLE [Concomitant]
     Active Substance: OMEPRAZOLE
     Indication: Product used for unknown indication
     Route: 065
     Dates: start: 20241205
  29. ONDANSETRON [Concomitant]
     Active Substance: ONDANSETRON
     Indication: Product used for unknown indication
     Route: 065
     Dates: start: 20241115, end: 20241205
  30. CYANOCOBALAMIN [Concomitant]
     Active Substance: CYANOCOBALAMIN
     Indication: Product used for unknown indication
     Route: 065
     Dates: start: 20241001
  31. ACETAMINOPHEN [Concomitant]
     Active Substance: ACETAMINOPHEN
     Indication: Product used for unknown indication
     Route: 065
     Dates: start: 2024
  32. SERTRALINE [Concomitant]
     Active Substance: SERTRALINE HYDROCHLORIDE
     Indication: Product used for unknown indication
     Route: 065
     Dates: start: 20241022

REACTIONS (5)
  - Autoimmune pericarditis [Recovered/Resolved]
  - Pericardial effusion [Recovering/Resolving]
  - Ascites [Recovering/Resolving]
  - Lymphadenopathy [Unknown]
  - Immunotoxicity [Unknown]

NARRATIVE: CASE EVENT DATE: 20241207
